FAERS Safety Report 20418134 (Version 1)
Quarter: 2022Q1

REPORT INFORMATION
  Report Type: Spontaneous
  Country: US (occurrence: US)
  Receive Date: 20220202
  Receipt Date: 20220202
  Transmission Date: 20220423
  Serious: Yes (Other)
  Sender: FDA-Public Use
  Company Number: US-SA-SAC20220201000879

PATIENT
  Sex: Male

DRUGS (1)
  1. DUPIXENT [Suspect]
     Active Substance: DUPILUMAB
     Dosage: UNK
     Route: 058

REACTIONS (8)
  - Diabetes mellitus [Recovering/Resolving]
  - Eye irritation [Recovering/Resolving]
  - Eyelid irritation [Recovering/Resolving]
  - Eye swelling [Recovering/Resolving]
  - Eye discharge [Recovering/Resolving]
  - Swelling of eyelid [Recovering/Resolving]
  - Hypertension [Recovering/Resolving]
  - Skin disorder [Recovering/Resolving]
